FAERS Safety Report 18987625 (Version 1)
Quarter: 2021Q1

REPORT INFORMATION
  Report Type: Spontaneous
  Country: GB (occurrence: GB)
  Receive Date: 20210309
  Receipt Date: 20210309
  Transmission Date: 20210420
  Serious: Yes (Life-Threatening)
  Sender: FDA-Public Use
  Company Number: GB-GILEAD-2021-0520290

PATIENT
  Age: 48 Year
  Sex: Male

DRUGS (17)
  1. FOSTAIR [Concomitant]
     Active Substance: BECLOMETHASONE\FORMOTEROL
  2. GABAPENTIN. [Concomitant]
     Active Substance: GABAPENTIN
  3. AMITRIPTYLIN [Concomitant]
     Active Substance: AMITRIPTYLINE
  4. ENOXAPARIN [Concomitant]
     Active Substance: ENOXAPARIN
  5. REMDESIVIR. [Suspect]
     Active Substance: REMDESIVIR
     Indication: CORONAVIRUS INFECTION
     Dosage: UNK
     Route: 065
  6. IPRATROPIUM [Concomitant]
     Active Substance: IPRATROPIUM
  7. CHLORPHENAMINE [Concomitant]
     Active Substance: CHLORPHENIRAMINE MALEATE
  8. OMEPRAZOL [OMEPRAZOLE] [Concomitant]
     Active Substance: OMEPRAZOLE
  9. PARACETAMOL [Concomitant]
     Active Substance: ACETAMINOPHEN
  10. CODEINE [Concomitant]
     Active Substance: CODEINE
  11. FAMOTIDINE. [Concomitant]
     Active Substance: FAMOTIDINE
  12. TAPENTADOL [Concomitant]
     Active Substance: TAPENTADOL
  13. BARICITINIB. [Concomitant]
     Active Substance: BARICITINIB
  14. LOSARTAN. [Concomitant]
     Active Substance: LOSARTAN
  15. PROMETHAZINE [Concomitant]
     Active Substance: PROMETHAZINE HYDROCHLORIDE
  16. SALBUTAMOL [Concomitant]
     Active Substance: ALBUTEROL
  17. LIDOCAINE. [Concomitant]
     Active Substance: LIDOCAINE

REACTIONS (1)
  - Liver function test increased [Not Recovered/Not Resolved]

NARRATIVE: CASE EVENT DATE: 20210303
